FAERS Safety Report 17472140 (Version 1)
Quarter: 2020Q1

REPORT INFORMATION
  Report Type: Spontaneous
  Country: US (occurrence: US)
  Receive Date: 20200228
  Receipt Date: 20200228
  Transmission Date: 20200409
  Serious: Yes (Life-Threatening, Other)
  Sender: FDA-Public Use
  Company Number: US-GLENMARK PHARMACEUTICALS-2020GMK046363

PATIENT

DRUGS (1)
  1. SULFAMETHOXAZOLE/TRIMETHOPRIM [Suspect]
     Active Substance: SULFAMETHOXAZOLE\TRIMETHOPRIM
     Indication: PENILE DISCHARGE
     Dosage: UNK
     Route: 065

REACTIONS (6)
  - Liver injury [Recovering/Resolving]
  - Drug reaction with eosinophilia and systemic symptoms [Recovering/Resolving]
  - Hepatic necrosis [Recovering/Resolving]
  - Drug hypersensitivity [Recovering/Resolving]
  - Hepatic encephalopathy [Recovering/Resolving]
  - Hepatitis [Recovering/Resolving]
